FAERS Safety Report 4291499-2 (Version None)
Quarter: 2004Q1

REPORT INFORMATION
  Report Type: 
  Country: None (occurrence: None)
  Receive Date: 20040211
  Receipt Date: 20030619
  Transmission Date: 20041129
  Serious: No
  Sender: FDA-Public Use
  Company Number: US-BRISTOL-MYERS SQUIBB COMPANY-12306593

PATIENT
  Age: 9 Month
  Sex: Female
  Weight: 8 kg

DRUGS (1)
  1. CEFZIL [Suspect]
     Indication: EAR INFECTION
     Route: 048
     Dates: start: 20030616, end: 20030618

REACTIONS (2)
  - DIARRHOEA [None]
  - MEDICATION ERROR [None]
